FAERS Safety Report 9586518 (Version 1)
Quarter: 2013Q3

REPORT INFORMATION
  Report Type: Spontaneous
  Country: US (occurrence: None)
  Receive Date: 20130926
  Receipt Date: 20130926
  Transmission Date: 20140515
  Serious: No
  Sender: FDA-Public Use
  Company Number: 2013-01424

PATIENT
  Age: 32 Year
  Sex: Female

DRUGS (4)
  1. VALPROIC ACID [Suspect]
     Indication: PRODUCT USED FOR UNKNOWN INDICATION
     Route: 042
  2. PHENOBARBITAL [Suspect]
     Route: 042
  3. MIDAZOLAM [Concomitant]
  4. TOPIRAMATE [Suspect]
     Indication: PRODUCT USED FOR UNKNOWN INDICATION
     Dosage: 100 MG (50 MG, 1 IN 12 HR), INTRAVENOUS
     Route: 042

REACTIONS (2)
  - Hyperammonaemic encephalopathy [None]
  - Drug interaction [None]
